FAERS Safety Report 8299917-X (Version None)
Quarter: 2012Q2

REPORT INFORMATION
  Report Type: 
  Country: None (occurrence: None)
  Receive Date: 20120420
  Receipt Date: 20120413
  Transmission Date: 20120825
  Serious: Yes (Death, Hospitalization, Other)
  Sender: FDA-Public Use
  Company Number: US-AMGEN-USASP2011050877

PATIENT
  Age: 73 Year
  Sex: Male
  Weight: 84.807 kg

DRUGS (5)
  1. RITUXAN [Concomitant]
     Dosage: 500 MUG/M2, QWK
     Route: 042
     Dates: start: 20101130, end: 20110201
  2. DANAZOL [Concomitant]
     Indication: THROMBOCYTOPENIA
  3. NPLATE [Suspect]
     Indication: CHRONIC LYMPHOCYTIC LEUKAEMIA STAGE 4
  4. CORTICOSTEROIDS [Concomitant]
     Indication: THROMBOCYTOPENIA
  5. NPLATE [Suspect]
     Indication: THROMBOCYTOPENIA
     Dosage: 11 MUG/KG, QWK
     Route: 058
     Dates: start: 20101130, end: 20110803

REACTIONS (5)
  - CHRONIC LYMPHOCYTIC LEUKAEMIA [None]
  - DISEASE PROGRESSION [None]
  - SEPSIS [None]
  - THROMBOCYTOPENIA [None]
  - THERAPEUTIC RESPONSE DECREASED [None]
